FAERS Safety Report 6680116-X (Version None)
Quarter: 2010Q2

REPORT INFORMATION
  Report Type: 
  Country: None (occurrence: None)
  Receive Date: 20100409
  Receipt Date: 20100329
  Transmission Date: 20101027
  Serious: Yes (Life-Threatening)
  Sender: FDA-Public Use
  Company Number: 1000013010

PATIENT
  Age: 82 Year
  Sex: Female

DRUGS (11)
  1. CITALOPRAM (CITALOPRAM HYDROBROMIDE) (20 MILLIGRAM, TABLETS) [Suspect]
     Indication: AGITATION
     Dosage: 1 DOSAGE FORMS (1 DOSAGE FORMS 1 IN 1 D), ORAL
     Route: 048
     Dates: start: 20090919, end: 20090921
  2. LEPONEX (25 MILLIGRAM) [Suspect]
     Indication: HALLUCINATION
     Dosage: (50 MG), ORAL
     Route: 048
     Dates: start: 20081101, end: 20090919
  3. LEPONEX (25 MILLIGRAM) [Suspect]
     Indication: HALLUCINATION
     Dosage: (75 MG),ORAL
     Route: 048
     Dates: start: 20090920, end: 20090921
  4. ARICEPT [Suspect]
     Indication: DEMENTIA WITH LEWY BODIES
     Dosage: (5 MG), ORAL
     Route: 048
     Dates: start: 20080801, end: 20090915
  5. ARICEPT [Suspect]
     Indication: DEMENTIA WITH LEWY BODIES
     Dosage: (10 MG), ORAL
     Route: 048
     Dates: start: 20090916, end: 20090921
  6. MODOPAR (3 DOSAGE FORMS) [Suspect]
     Indication: DEMENTIA WITH LEWY BODIES
     Dosage: ORAL
     Route: 048
  7. LYSANXIA [Suspect]
     Indication: ANXIETY
     Dosage: ORAL
     Route: 048
  8. ZESTRIL [Suspect]
     Indication: HYPERTENSION
     Dosage: (1 DOSAGE FORMS)
     Dates: end: 20090921
  9. NOCTAMIDE [Suspect]
     Indication: INSOMNIA
     Dosage: (0.5 DOSAGE FORMS), ORAL
     Route: 048
     Dates: end: 20090918
  10. PARACETAMOL [Suspect]
     Indication: PAIN
     Dosage: (4 GM), ORAL
     Route: 048
  11. EQUANIL [Suspect]
     Indication: ANXIETY
     Dosage: ORAL
     Route: 048

REACTIONS (3)
  - CARDIO-RESPIRATORY ARREST [None]
  - LOSS OF CONSCIOUSNESS [None]
  - OFF LABEL USE [None]
